FAERS Safety Report 8785421 (Version 1)
Quarter: 2012Q4

REPORT INFORMATION
  Report Type: Spontaneous
  Country: US (occurrence: None)
  Receive Date: 20120904
  Receipt Date: 20120904
  Transmission Date: 20130627
  Serious: No
  Sender: FDA-Public Use
  Company Number: 2012P1054582

PATIENT
  Age: 17 Month
  Sex: Female

DRUGS (1)
  1. OXCARBAZEPINE [Suspect]
     Indication: SEIZURES

REACTIONS (2)
  - Muscle spasms [None]
  - Arrhythmia [None]
